FAERS Safety Report 6860326-9 (Version None)
Quarter: 2010Q3

REPORT INFORMATION
  Report Type: 
  Country: None (occurrence: None)
  Receive Date: 20100719
  Receipt Date: 20100719
  Transmission Date: 20110219
  Serious: Yes (Death)
  Sender: FDA-Public Use
  Company Number: None

PATIENT
  Age: 47 Year
  Sex: Female
  Weight: 80 kg

DRUGS (2)
  1. HURRICAINE 20% BEUTLICH PHARMACEUTICALS [Suspect]
     Indication: ANAESTHESIA
     Dosage: SPRAY ONCE PO
     Route: 048
     Dates: start: 20100627, end: 20100627
  2. LIDOCAINE [Suspect]
     Indication: ANAESTHESIA
     Dosage: 15 ML ONCE PO
     Route: 048

REACTIONS (2)
  - HYPOXIC-ISCHAEMIC ENCEPHALOPATHY [None]
  - METHAEMOGLOBINAEMIA [None]
